FAERS Safety Report 8007468-2 (Version None)
Quarter: 2011Q4

REPORT INFORMATION
  Report Type: 
  Country: None (occurrence: None)
  Receive Date: 20111227
  Receipt Date: 20111216
  Transmission Date: 20120403
  Serious: Yes (Hospitalization)
  Sender: FDA-Public Use
  Company Number: DE-MPIJNJ-2011-06184

PATIENT

DRUGS (6)
  1. BISPHOSPHONATES [Concomitant]
     Dosage: UNK
     Dates: start: 20071004
  2. PEGFILGRASTIM [Concomitant]
     Dosage: UNK
     Dates: start: 20110817
  3. CYCLOPHOSPHAMIDE [Concomitant]
     Indication: MULTIPLE MYELOMA
     Dosage: UNK
     Dates: start: 20110708, end: 20111107
  4. DARBEPOETIN ALFA [Concomitant]
     Dosage: UNK
     Dates: start: 20110708
  5. VELCADE [Suspect]
     Indication: MULTIPLE MYELOMA
     Dosage: UNK
     Dates: start: 20110708, end: 20111107
  6. DEXAMETHASONE [Concomitant]
     Indication: MULTIPLE MYELOMA
     Dosage: UNK
     Dates: start: 20110708, end: 20111107

REACTIONS (1)
  - GENERAL PHYSICAL HEALTH DETERIORATION [None]
